FAERS Safety Report 6278583-9 (Version None)
Quarter: 2009Q3

REPORT INFORMATION
  Report Type: 
  Country: None (occurrence: None)
  Receive Date: 20090722
  Receipt Date: 20081118
  Transmission Date: 20100115
  Serious: No
  Sender: FDA-Public Use
  Company Number: US-BAUSCH-2008BL004846

PATIENT
  Age: 62 Year
  Sex: Female

DRUGS (6)
  1. OPCON-A [Suspect]
     Indication: EYE PRURITUS
     Route: 047
     Dates: start: 20081114, end: 20081114
  2. OPCON-A [Suspect]
     Indication: EYE IRRITATION
     Route: 047
     Dates: start: 20081114, end: 20081114
  3. VITAMINS [Concomitant]
  4. ANACIN [Concomitant]
  5. LEXAPRO [Concomitant]
  6. ACTONEL /USA/ [Concomitant]

REACTIONS (1)
  - EYE IRRITATION [None]
